FAERS Safety Report 11219407 (Version 2)
Quarter: 2015Q4

REPORT INFORMATION
  Report Type: Spontaneous
  Country: US (occurrence: US)
  Receive Date: 20150625
  Receipt Date: 20151008
  Transmission Date: 20160304
  Serious: Yes (Hospitalization, Other)
  Sender: FDA-Public Use
  Company Number: US-ELI_LILLY_AND_COMPANY-US201506005898

PATIENT
  Sex: Male

DRUGS (4)
  1. EFFIENT [Suspect]
     Active Substance: PRASUGREL HYDROCHLORIDE
     Indication: CORONARY ARTERIAL STENT INSERTION
     Dosage: UNK, UNKNOWN
     Route: 048
     Dates: start: 20140514
  2. LIPITOR [Concomitant]
     Active Substance: ATORVASTATIN CALCIUM
     Dosage: UNK, UNKNOWN
     Route: 065
  3. ASPIRIN                            /00002701/ [Concomitant]
     Active Substance: ASPIRIN
     Dosage: UNK, UNKNOWN
     Route: 065
  4. AMOXICILLIN. [Concomitant]
     Active Substance: AMOXICILLIN
     Indication: TOOTH DISORDER
     Dosage: UNK, UNKNOWN
     Route: 065

REACTIONS (2)
  - Cardiac disorder [Unknown]
  - Bundle branch block right [Recovered/Resolved]
